FAERS Safety Report 23856496 (Version 2)
Quarter: 2024Q2

REPORT INFORMATION
  Report Type: Report from Study
  Country: US (occurrence: US)
  Receive Date: 20240515
  Receipt Date: 20240609
  Transmission Date: 20240716
  Serious: Yes (Other)
  Sender: FDA-Public Use
  Company Number: US-BRISTOL-MYERS SQUIBB COMPANY-2024-074464

PATIENT
  Age: 73 Year
  Sex: Male
  Weight: 92.99 kg

DRUGS (8)
  1. POMALYST [Suspect]
     Active Substance: POMALIDOMIDE
     Indication: Plasma cell myeloma
     Route: 048
     Dates: start: 202202
  2. DEXAMETHASONE [Concomitant]
     Active Substance: DEXAMETHASONE
  3. CHLORHEXIDINE GLUCONATE [Concomitant]
     Active Substance: CHLORHEXIDINE GLUCONATE
  4. GLIPIZIDE [Concomitant]
     Active Substance: GLIPIZIDE
     Dosage: ER
  5. JARDIANCE [Concomitant]
     Active Substance: EMPAGLIFLOZIN
  6. LEVOFLOXACIN [Concomitant]
     Active Substance: LEVOFLOXACIN
  7. XTANDI [Concomitant]
     Active Substance: ENZALUTAMIDE
     Dosage: IN THE MORNING
  8. XTANDI [Concomitant]
     Active Substance: ENZALUTAMIDE
     Dosage: ONE IN THE MORNING AND ONE AT NIGHT

REACTIONS (2)
  - Neutropenia [Unknown]
  - Feeling abnormal [Recovering/Resolving]
